FAERS Safety Report 11514965 (Version 1)
Quarter: 2015Q3

REPORT INFORMATION
  Report Type: Spontaneous
  Country: US (occurrence: US)
  Receive Date: 20150916
  Receipt Date: 20150916
  Transmission Date: 20151125
  Serious: No
  Sender: FDA-Public Use
  Company Number: US-BAYER-2015-415629

PATIENT
  Age: 63 Year
  Sex: Female

DRUGS (1)
  1. CLIMARA PRO [Suspect]
     Active Substance: ESTRADIOL\LEVONORGESTREL
     Indication: MENOPAUSAL SYMPTOMS
     Route: 062

REACTIONS (9)
  - Pruritus [None]
  - Product adhesion issue [None]
  - Dry skin [None]
  - Headache [None]
  - Malaise [None]
  - Feeling abnormal [None]
  - Drug ineffective [None]
  - Feeling hot [None]
  - Nausea [None]

NARRATIVE: CASE EVENT DATE: 201208
